FAERS Safety Report 14739839 (Version 1)
Quarter: 2018Q2

REPORT INFORMATION
  Report Type: Spontaneous
  Country: FR (occurrence: FR)
  Receive Date: 20180410
  Receipt Date: 20180410
  Transmission Date: 20180711
  Serious: Yes (Other)
  Sender: FDA-Public Use
  Company Number: FR-MERCK KGAA-2045435

PATIENT
  Age: 55 Year
  Sex: Female

DRUGS (1)
  1. NOVOTHYROX [Suspect]
     Active Substance: LEVOTHYROXINE SODIUM
     Indication: PRODUCT USED FOR UNKNOWN INDICATION
     Dates: start: 201703

REACTIONS (16)
  - Affect lability [None]
  - Dizziness [None]
  - Sensory loss [None]
  - Gait disturbance [None]
  - Fatigue [None]
  - Limb immobilisation [None]
  - Impaired driving ability [Recovering/Resolving]
  - Fall [None]
  - Fear of falling [None]
  - Crying [None]
  - Limb discomfort [None]
  - Balance disorder [None]
  - Restlessness [None]
  - Peripheral swelling [None]
  - Thinking abnormal [None]
  - Mobility decreased [None]

NARRATIVE: CASE EVENT DATE: 2017
